FAERS Safety Report 4335800-X (Version None)
Quarter: 2004Q2

REPORT INFORMATION
  Report Type: 
  Country: None (occurrence: None)
  Receive Date: 20040406
  Receipt Date: 20040330
  Transmission Date: 20050107
  Serious: Yes (Hospitalization)
  Sender: FDA-Public Use
  Company Number: 200308869

PATIENT
  Age: 12 Year
  Sex: Male

DRUGS (2)
  1. HUMATE-P [Suspect]
     Indication: FACTOR VIII DEFICIENCY
     Dosage: SEE IMAGE
     Route: 042
     Dates: start: 20031010
  2. HUMATE-P [Suspect]

REACTIONS (5)
  - CATHETER RELATED INFECTION [None]
  - FEELING ABNORMAL [None]
  - PYREXIA [None]
  - SKIN INFECTION [None]
  - STAPHYLOCOCCAL INFECTION [None]
